FAERS Safety Report 24895351 (Version 1)
Quarter: 2025Q1

REPORT INFORMATION
  Report Type: Spontaneous
  Country: US (occurrence: None)
  Receive Date: 20250128
  Receipt Date: 20250128
  Transmission Date: 20250409
  Serious: No
  Sender: FDA-CTU
  Company Number: None

PATIENT
  Age: 15 Year
  Sex: Female

DRUGS (1)
  1. GATTEX [Suspect]
     Active Substance: TEDUGLUTIDE\WATER
     Indication: Graft versus host disease
     Dosage: FREQUENCY : DAILY;?OTHER ROUTE : INJECTABLE;?
     Route: 050
     Dates: start: 20250127

REACTIONS (1)
  - Off label use [None]

NARRATIVE: CASE EVENT DATE: 20250127
